FAERS Safety Report 19449363 (Version 1)
Quarter: 2021Q2

REPORT INFORMATION
  Report Type: Spontaneous
  Country: US (occurrence: US)
  Receive Date: 20210622
  Receipt Date: 20210622
  Transmission Date: 20210717
  Serious: No
  Sender: FDA-Public Use
  Company Number: US-TEVA-2021-US-1924368

PATIENT
  Sex: Female

DRUGS (2)
  1. CINQAIR [Suspect]
     Active Substance: RESLIZUMAB
     Indication: ASTHMA
     Dosage: STRENGTH: 100 MG / 10 ML
     Route: 065
     Dates: start: 20200710
  2. CINQAIR [Suspect]
     Active Substance: RESLIZUMAB
     Indication: HYPERSENSITIVITY

REACTIONS (6)
  - Pruritus [Unknown]
  - Throat irritation [Unknown]
  - Sinusitis [Unknown]
  - Nasal congestion [Unknown]
  - Swelling [Unknown]
  - Drug ineffective [Unknown]

NARRATIVE: CASE EVENT DATE: 202008
